FAERS Safety Report 20184314 (Version 1)
Quarter: 2021Q4

REPORT INFORMATION
  Report Type: Spontaneous
  Country: US (occurrence: US)
  Receive Date: 20211214
  Receipt Date: 20211214
  Transmission Date: 20220304
  Serious: No
  Sender: FDA-Public Use
  Company Number: US-SK LIFE SCIENCE, INC-SKPVG-2021-000917

PATIENT

DRUGS (7)
  1. XCOPRI [Suspect]
     Active Substance: CENOBAMATE
     Indication: Epilepsy
     Dosage: 250 MILLIGRAM, QD
     Route: 048
     Dates: start: 20210114, end: 20210829
  2. XCOPRI [Suspect]
     Active Substance: CENOBAMATE
     Dosage: 250 MILLIGRAM, QD
     Route: 048
     Dates: start: 20210908
  3. LAMOTRIGINE [Concomitant]
     Active Substance: LAMOTRIGINE
     Indication: Product used for unknown indication
     Dosage: 100 MILLIGRAM, QD, ONE TABLET
     Route: 048
     Dates: start: 201904
  4. LEVETIRACETAM [Concomitant]
     Active Substance: LEVETIRACETAM
     Indication: Product used for unknown indication
     Dosage: 750 MILLIGRAM, BID, BY MOUTH TWICE DAILY (TWO TABLET BY MOUTH)
     Route: 048
     Dates: start: 20200320
  5. QUETIAPINE [Concomitant]
     Active Substance: QUETIAPINE
     Indication: Product used for unknown indication
     Dosage: 400 MILLIGRAM, QHS, TWO TABLETS EVERY DAY BY MOUTH AT BED TIME (STARTED ABOUT 10 YEARS AGO)
     Route: 048
  6. CLONIDINE [Concomitant]
     Active Substance: CLONIDINE
     Indication: Product used for unknown indication
     Dosage: 0.1 MILLIGRAM, QHS, 1 TABLET BY MOUTH EVERYDAY AT BED TIME
     Route: 048
     Dates: start: 20200320
  7. CITALOPRAM [Concomitant]
     Active Substance: CITALOPRAM HYDROBROMIDE
     Indication: Product used for unknown indication
     Dosage: 20 MILLIGRAM, QHS (EVENING), ONE TABLET BY MOUTH
     Route: 048
     Dates: start: 20200320

REACTIONS (1)
  - Product availability issue [Recovered/Resolved]

NARRATIVE: CASE EVENT DATE: 20210830
